FAERS Safety Report 25972862 (Version 4)
Quarter: 2025Q4

REPORT INFORMATION
  Report Type: Spontaneous
  Country: US (occurrence: US)
  Receive Date: 20251029
  Receipt Date: 20251106
  Transmission Date: 20260117
  Serious: Yes (Hospitalization)
  Sender: SANDOZ
  Company Number: US-SANDOZ-SDZ2025US079024

PATIENT
  Sex: Female

DRUGS (1)
  1. ALBUTEROL SULFATE [Suspect]
     Active Substance: ALBUTEROL SULFATE
     Indication: Nasopharyngitis
     Dosage: UNK (STRENGTH: 90MCG), 2 PUFFS EVERY 4 HRS
     Route: 065

REACTIONS (6)
  - Rhinovirus infection [Recovering/Resolving]
  - Dizziness [Recovered/Resolved]
  - Illness [Unknown]
  - Drug ineffective [Unknown]
  - Circumstance or information capable of leading to device use error [Unknown]
  - Device delivery system issue [Unknown]
